FAERS Safety Report 24748851 (Version 1)
Quarter: 2024Q4

REPORT INFORMATION
  Report Type: Spontaneous
  Country: US (occurrence: None)
  Receive Date: 20241216
  Receipt Date: 20241216
  Transmission Date: 20250115
  Serious: Yes (Other)
  Sender: Public
  Company Number: None

PATIENT
  Age: 22 Year
  Sex: Female

DRUGS (1)
  1. APLISOL [Suspect]
     Active Substance: TUBERCULIN PURIFIED PROTEIN DERIVATIVE
     Dates: start: 20241216, end: 20241216

REACTIONS (3)
  - Incorrect dose administered [None]
  - Drug monitoring procedure not performed [None]
  - Wrong technique in product usage process [None]

NARRATIVE: CASE EVENT DATE: 20241216
